FAERS Safety Report 8609151-9 (Version None)
Quarter: 2012Q3

REPORT INFORMATION
  Report Type: 
  Country: None (occurrence: None)
  Receive Date: 20120821
  Receipt Date: 20120717
  Transmission Date: 20120928
  Serious: Yes (Hospitalization)
  Sender: FDA-Public Use
  Company Number: US-BRISTOL-MYERS SQUIBB COMPANY-16612723

PATIENT
  Age: 60 Year
  Sex: Male

DRUGS (8)
  1. ARIPIPRAZOLE [Suspect]
     Indication: SCHIZOPHRENIA
     Dates: start: 20120430, end: 20120506
  2. DEPAKOTE [Concomitant]
     Dates: start: 20090901
  3. LOSARTAN POTASSIUM [Concomitant]
     Dates: start: 20090701
  4. AMLODIPINE BESYLATE [Concomitant]
     Dates: start: 20090701
  5. GLYBURIDE [Concomitant]
     Dates: start: 20050601
  6. GEMFIBROZIL [Concomitant]
     Dates: start: 20040101
  7. ZOLOFT [Concomitant]
     Dates: start: 20111001
  8. ASPIRIN [Concomitant]
     Dates: start: 20110101

REACTIONS (1)
  - PSYCHOTIC DISORDER [None]
